FAERS Safety Report 4423117-4 (Version None)
Quarter: 2004Q3

REPORT INFORMATION
  Report Type: 
  Country: None (occurrence: None)
  Receive Date: 20040805
  Receipt Date: 20040720
  Transmission Date: 20050211
  Serious: Yes (Hospitalization)
  Sender: FDA-Public Use
  Company Number: 2004-03258

PATIENT
  Age: 85 Year
  Sex: Female
  Weight: 70.3 kg

DRUGS (8)
  1. COLCHICINE (WATSON LABORATORIES) (COLCHICINE) TABLET, 0.6 MG [Suspect]
     Indication: GOUT
     Dosage: SEE IMAGE
     Dates: start: 20040422, end: 20040428
  2. COLCHICINE (WATSON LABORATORIES) (COLCHICINE) TABLET, 0.6 MG [Suspect]
     Indication: GOUT
     Dosage: SEE IMAGE
     Dates: start: 20040712
  3. ATENOLOL [Concomitant]
  4. COUMADIN [Concomitant]
  5. EVISTA [Concomitant]
  6. ALLOPURINOL [Concomitant]
  7. TYLENOL [Concomitant]
  8. VITAMIN B6 [Concomitant]

REACTIONS (9)
  - ASTHENIA [None]
  - CEREBRAL INFARCTION [None]
  - CEREBROVASCULAR ACCIDENT [None]
  - CONDITION AGGRAVATED [None]
  - DEHYDRATION [None]
  - DIARRHOEA [None]
  - FALL [None]
  - GOUT [None]
  - RIB FRACTURE [None]
